FAERS Safety Report 12384433 (Version 1)
Quarter: 2016Q2

REPORT INFORMATION
  Report Type: Spontaneous
  Country: US (occurrence: None)
  Receive Date: 20160518
  Receipt Date: 20160518
  Transmission Date: 20160815
  Serious: Yes (Other)
  Sender: FDA-Public Use
  Company Number: None

PATIENT
  Age: 62 Year
  Sex: Female
  Weight: 74.84 kg

DRUGS (2)
  1. ABILIFY [Suspect]
     Active Substance: ARIPIPRAZOLE
     Indication: MAJOR DEPRESSION
     Route: 048
     Dates: start: 20091219, end: 20160425
  2. ABILIFY [Suspect]
     Active Substance: ARIPIPRAZOLE
     Indication: BIPOLAR II DISORDER
     Route: 048
     Dates: start: 20091219, end: 20160425

REACTIONS (5)
  - Economic problem [None]
  - Overweight [None]
  - Compulsive shopping [None]
  - Gambling [None]
  - Eating disorder [None]

NARRATIVE: CASE EVENT DATE: 20091219
